FAERS Safety Report 4443600-5 (Version None)
Quarter: 2004Q3

REPORT INFORMATION
  Report Type: 
  Country: None (occurrence: None)
  Receive Date: 20040903
  Receipt Date: 20040903
  Transmission Date: 20050211
  Serious: Yes (Death, Life-Threatening, Hospitalization, Disabling)
  Sender: FDA-Public Use
  Company Number: None

PATIENT
  Age: 76 Year
  Sex: Male
  Weight: 52.6173 kg

DRUGS (1)
  1. AMIODARONE 300 MG BARR LABORATORIES [Suspect]
     Dosage: 300 MG PER DAY
     Dates: start: 20030324, end: 20031207

REACTIONS (27)
  - ABDOMINAL PAIN [None]
  - ACTIVITIES OF DAILY LIVING IMPAIRED [None]
  - ANOREXIA [None]
  - ASTHENIA [None]
  - BEDRIDDEN [None]
  - CONSTIPATION [None]
  - CONTUSION [None]
  - DEPRESSION [None]
  - DIZZINESS [None]
  - DRUG INEFFECTIVE [None]
  - DYSGEUSIA [None]
  - DYSPNOEA [None]
  - DYSSTASIA [None]
  - HALLUCINATIONS, MIXED [None]
  - HEADACHE [None]
  - LOSS OF CONSCIOUSNESS [None]
  - LUNG INJURY [None]
  - NAUSEA [None]
  - ORAL PAIN [None]
  - OXYGEN SATURATION DECREASED [None]
  - PAROSMIA [None]
  - PHARYNGOLARYNGEAL PAIN [None]
  - PNEUMONIA [None]
  - THYROID DISORDER [None]
  - TREMOR [None]
  - VISION BLURRED [None]
  - VOMITING [None]
